FAERS Safety Report 6840824-4 (Version None)
Quarter: 2010Q3

REPORT INFORMATION
  Report Type: 
  Country: None (occurrence: None)
  Receive Date: 20100714
  Receipt Date: 20061226
  Transmission Date: 20110219
  Serious: Yes (Other)
  Sender: FDA-Public Use
  Company Number: US-PFIZER INC-2006114233

PATIENT
  Age: 38 Year
  Sex: Male
  Weight: 79.4 kg

DRUGS (1)
  1. CHANTIX [Suspect]
     Indication: SMOKING CESSATION THERAPY
     Dates: start: 20060919, end: 20060919

REACTIONS (6)
  - AGITATION [None]
  - ANXIETY [None]
  - DYSPNOEA [None]
  - EMOTIONAL DISORDER [None]
  - HYPERVENTILATION [None]
  - MUSCLE SPASMS [None]
